FAERS Safety Report 5828936-5 (Version None)
Quarter: 2008Q3

REPORT INFORMATION
  Report Type: 
  Country: None (occurrence: None)
  Receive Date: 20080731
  Receipt Date: 20080716
  Transmission Date: 20090109
  Serious: Yes (Death, Hospitalization)
  Sender: FDA-Public Use
  Company Number: US-BRISTOL-MYERS SQUIBB COMPANY-14196661

PATIENT
  Age: 59 Year
  Sex: Male
  Weight: 98 kg

DRUGS (21)
  1. CETUXIMAB [Suspect]
     Indication: METASTATIC GASTRIC CANCER
     Dosage: THERAPY DATES:14APR08-21APR08
     Route: 042
     Dates: start: 20080512, end: 20080512
  2. TAXOTERE [Suspect]
     Indication: GASTRIC CANCER
     Dosage: BTCH/LOT#:D6C992,EXP DTE:APR09.BTCH/LOT#:20D7D0646,EXP DT:APR09.BTCH/LOT#:D7D646,EXP DATE:SEP09
     Route: 042
     Dates: start: 20080414
  3. ELOXATIN [Suspect]
     Indication: METASTATIC GASTRIC CANCER
     Dosage: BATCH/LOT#:1116070A.EXPIRY DATE:NOV2009.BATCH/LOT#:J1116070A/1WD4C746.EXPIRY DATE:NOV-2009/JUN-2010
     Route: 042
     Dates: start: 20080414
  4. ALLOPURINOL [Concomitant]
     Route: 048
  5. CYCLOBENZAPRINE HCL [Concomitant]
     Dosage: TAKEN AS 1 IN 8 ASREQUIRED
     Route: 048
  6. DEXAMETHASONE [Concomitant]
     Route: 048
  7. LORAZEPAM [Concomitant]
     Dosage: NUMBER OF DOSAGES  1 IN 12 AS REQUIRED.
     Route: 048
  8. METOPROLOL TARTRATE [Concomitant]
     Route: 048
  9. OXYCODONE HCL [Concomitant]
     Route: 065
  10. PROCHLORPERAZINE [Concomitant]
     Route: 065
  11. TRANDOLAPRIL [Concomitant]
     Route: 065
  12. VERAPAMIL [Concomitant]
     Route: 065
  13. METRONIDAZOLE HCL [Concomitant]
     Indication: CLOSTRIDIUM DIFFICILE COLITIS
     Route: 065
  14. QUESTRAN [Concomitant]
     Route: 065
  15. DECADRON [Concomitant]
     Route: 065
  16. ARIXTRA [Concomitant]
     Route: 065
  17. PREVACID [Concomitant]
     Route: 065
  18. TOPROL-XL [Concomitant]
     Indication: HYPERTENSION
     Route: 065
  19. NEUTRA-PHOS [Concomitant]
     Indication: HYPOPHOSPHATAEMIA
     Route: 065
  20. ATIVAN [Concomitant]
     Route: 065
  21. OXYCODONE HCL [Concomitant]
     Route: 065

REACTIONS (5)
  - CARDIO-RESPIRATORY ARREST [None]
  - DIARRHOEA [None]
  - FAILURE TO THRIVE [None]
  - HYPONATRAEMIA [None]
  - HYPOPHOSPHATAEMIA [None]
